FAERS Safety Report 7978564-0 (Version None)
Quarter: 2011Q4

REPORT INFORMATION
  Report Type: 
  Country: None (occurrence: None)
  Receive Date: 20111214
  Receipt Date: 20111202
  Transmission Date: 20120403
  Serious: Yes (Hospitalization)
  Sender: FDA-Public Use
  Company Number: NL-JNJFOC-20111105295

PATIENT
  Sex: Female
  Weight: 54.3 kg

DRUGS (5)
  1. REMICADE [Suspect]
     Indication: CROHN'S DISEASE
     Route: 042
     Dates: start: 20110311, end: 20110426
  2. ANTIBIOTICS [Concomitant]
     Indication: TONSILLITIS
  3. PREDNISONE [Concomitant]
  4. AZATHIOPRINE [Concomitant]
  5. HUMIRA [Concomitant]
     Dates: start: 20110610, end: 20111014

REACTIONS (1)
  - WEIGHT DECREASED [None]
